FAERS Safety Report 24279385 (Version 1)
Quarter: 2024Q3

REPORT INFORMATION
  Report Type: Report from Study
  Country: US (occurrence: US)
  Receive Date: 20240903
  Receipt Date: 20240903
  Transmission Date: 20241017
  Serious: Yes (Other)
  Sender: JOHNSON AND JOHNSON
  Company Number: US-JNJFOC-20240872565

PATIENT
  Age: 19 Year
  Sex: Male

DRUGS (2)
  1. SPRAVATO [Suspect]
     Active Substance: ESKETAMINE
     Indication: Depression
     Dosage: ^56 MG, 12 TOTAL DOSES^
     Dates: start: 20240618, end: 20240729
  2. SPRAVATO [Suspect]
     Active Substance: ESKETAMINE
     Dosage: ^84 MG, 8 TOTAL DOSES^
     Dates: start: 20240801, end: 20240826

REACTIONS (3)
  - Hallucination [Unknown]
  - Dissociation [Unknown]
  - Micturition urgency [Unknown]

NARRATIVE: CASE EVENT DATE: 20240801
